FAERS Safety Report 9190723 (Version 1)
Quarter: 2013Q1

REPORT INFORMATION
  Report Type: Spontaneous
  Country: US (occurrence: US)
  Receive Date: 20130326
  Receipt Date: 20130326
  Transmission Date: 20140127
  Serious: Yes (Other)
  Sender: FDA-Public Use
  Company Number: PHEH2013US006669

PATIENT
  Sex: Female

DRUGS (25)
  1. EXELON PATCH [Suspect]
     Indication: VASCULAR DEMENTIA
     Dosage: 4.6 MG, QD
     Route: 062
  2. EXELON PATCH [Suspect]
     Dosage: 9.5 MG, QD
     Route: 062
  3. ALBUTEROL [Concomitant]
     Dosage: UNK UKN, UNK
  4. SIMVASTATIN [Concomitant]
     Dosage: UNK UKN, UNK
  5. LASIX [Concomitant]
     Dosage: UNK UKN, UNK
  6. NEXIUM [Concomitant]
     Dosage: UNK UKN, UNK
  7. TERAZOSIN [Concomitant]
     Dosage: UNK UKN, UNK
  8. DILTIAZEM [Concomitant]
     Dosage: UNK UKN, UNK
  9. LANTUS [Concomitant]
     Indication: DIABETES MELLITUS
     Dosage: UNK UKN, UNK
  10. ACYCLOVIR [Concomitant]
     Dosage: UNK UKN, UNK
  11. DIAVENTAM [Concomitant]
     Dosage: UNK UKN, UNK
  12. CALCIUM [Concomitant]
     Dosage: UNK UKN, UNK
  13. VITAMIN D3 [Concomitant]
     Dosage: UNK UKN, UNK
  14. FISH OIL [Concomitant]
     Dosage: UNK UKN, UNK
  15. RYTHMOL [Concomitant]
     Dosage: UNK UKN, UNK
  16. COUMADIN [Concomitant]
     Dosage: UNK UKN, UNK
  17. ZYRTEC [Concomitant]
     Dosage: UNK UKN, UNK
  18. KLOR-CON [Concomitant]
     Dosage: UNK UKN, UNK
  19. TRAMADOL [Concomitant]
     Dosage: UNK UKN, UNK
  20. GABAPENTIN [Concomitant]
     Dosage: UNK UKN, UNK
  21. CARDIZEM [Concomitant]
     Dosage: UNK UKN, UNK
  22. LEVOXYL [Concomitant]
     Dosage: UNK UKN, UNK
  23. ADCIRCA [Concomitant]
     Dosage: UNK UKN, UNK
  24. MINOCIN [Concomitant]
     Dosage: UNK UKN, UNK
  25. EFFEXOR [Concomitant]
     Dosage: 150 MG, UNK

REACTIONS (4)
  - Pulmonary hypertension [Unknown]
  - Chronic obstructive pulmonary disease [Unknown]
  - Diabetes mellitus [Unknown]
  - Atrial fibrillation [Unknown]
